FAERS Safety Report 7818125-7 (Version None)
Quarter: 2011Q4

REPORT INFORMATION
  Report Type: 
  Country: None (occurrence: None)
  Receive Date: 20111017
  Receipt Date: 20111010
  Transmission Date: 20120403
  Serious: Yes (Death)
  Sender: FDA-Public Use
  Company Number: MX-SANOFI-AVENTIS-2011SA066453

PATIENT
  Age: 71 Year
  Sex: Female
  Weight: 80 kg

DRUGS (4)
  1. MICARDIS [Concomitant]
     Route: 048
     Dates: end: 20110607
  2. ENALAPRIL MALEATE [Concomitant]
     Route: 048
     Dates: end: 20110607
  3. LANTUS [Suspect]
     Indication: TYPE 2 DIABETES MELLITUS
     Route: 058
     Dates: start: 20070101, end: 20110607
  4. DILTIAZEM HCL [Concomitant]
     Indication: ANGINA PECTORIS
     Route: 048
     Dates: end: 20110607

REACTIONS (1)
  - CERVIX NEOPLASM [None]
